FAERS Safety Report 8159287-4 (Version None)
Quarter: 2012Q1

REPORT INFORMATION
  Report Type: 
  Country: None (occurrence: None)
  Receive Date: 20120217
  Receipt Date: 20120203
  Transmission Date: 20120608
  Serious: Yes (Hospitalization)
  Sender: FDA-Public Use
  Company Number: 1000028421

PATIENT
  Age: 58 Year
  Sex: Male

DRUGS (11)
  1. ESCITALOPRAM OXALATE [Suspect]
     Indication: PRODUCT USED FOR UNKNOWN INDICATION
     Dosage: 20 MG (20 MG, 1 IN 1D) ORAL
     Route: 048
     Dates: start: 20110101, end: 20111012
  2. CLOPIDOGREL [Concomitant]
  3. INSULIN DETEMIR (INSULIN DETEMIR) [Concomitant]
  4. ATACAND HCT [Suspect]
     Indication: HYPERTENSION
     Dosage: 32 MG/25 MG (3 IN 1 D) ORAL
     Route: 048
     Dates: start: 20110101, end: 20111012
  5. INDAPAMIDE [Concomitant]
  6. ATORVASTATIN [Concomitant]
  7. INSULIN ASPART (INSULIN ASPART) [Concomitant]
  8. PANTOPRAZOLE [Concomitant]
  9. VALDOXAN (AGOMELATINE) [Concomitant]
  10. ATENOLOL [Concomitant]
  11. VENLAFAXINE [Concomitant]

REACTIONS (9)
  - HYPONATRAEMIA [None]
  - BLOOD GLUCOSE INCREASED [None]
  - DRUG INTERACTION [None]
  - DIARRHOEA [None]
  - DIZZINESS [None]
  - RENAL FAILURE ACUTE [None]
  - VISION BLURRED [None]
  - DEPRESSED LEVEL OF CONSCIOUSNESS [None]
  - BLOOD SODIUM DECREASED [None]
